FAERS Safety Report 22536381 (Version 1)
Quarter: 2023Q2

REPORT INFORMATION
  Report Type: Spontaneous
  Country: US (occurrence: None)
  Receive Date: 20230607
  Receipt Date: 20230607
  Transmission Date: 20230722
  Serious: Yes (Hospitalization, Other)
  Sender: FDA-Public Use
  Company Number: None

PATIENT
  Sex: Male

DRUGS (1)
  1. ABIRATERONE [Suspect]
     Active Substance: ABIRATERONE
     Dosage: FREQUENCY : DAILY;?
     Route: 048

REACTIONS (12)
  - Excessive cerumen production [None]
  - Dry skin [None]
  - Skin wrinkling [None]
  - Weight increased [None]
  - Muscle strength abnormal [None]
  - Exercise tolerance decreased [None]
  - Myalgia [None]
  - Rhinorrhoea [None]
  - Emotional disorder [None]
  - Hair colour changes [None]
  - Pneumonia [None]
  - COVID-19 [None]
